FAERS Safety Report 7095990-5 (Version None)
Quarter: 2010Q4

REPORT INFORMATION
  Report Type: 
  Country: None (occurrence: None)
  Receive Date: 20101109
  Receipt Date: 20101109
  Transmission Date: 20110411
  Serious: No
  Sender: FDA-Public Use
  Company Number: None

PATIENT
  Age: 60 Year
  Sex: Female
  Weight: 47.1741 kg

DRUGS (1)
  1. EVISTA [Suspect]
     Indication: BONE DISORDER
     Dosage: 60MG TABLET ONE PER DAY PO
     Route: 048
     Dates: start: 20100420, end: 20101025

REACTIONS (3)
  - ARTHRALGIA [None]
  - HOT FLUSH [None]
  - HYPERHIDROSIS [None]
